FAERS Safety Report 25044707 (Version 1)
Quarter: 2025Q1

REPORT INFORMATION
  Report Type: Report from Study
  Country: US (occurrence: US)
  Receive Date: 20250306
  Receipt Date: 20250306
  Transmission Date: 20250408
  Serious: Yes (Other)
  Sender: BRISTOL-MYERS SQUIBB COMPANY
  Company Number: US-BRISTOL-MYERS SQUIBB COMPANY-2025-028824

PATIENT
  Age: 57 Year
  Sex: Male
  Weight: 68.04 kg

DRUGS (10)
  1. REVLIMID [Suspect]
     Active Substance: LENALIDOMIDE
     Indication: Plasma cell myeloma
     Dosage: TAKE 1 CAPSULE DAILY FOR 3 WEEKS ON, 1 WEEK OFF
     Dates: start: 2015
  2. NINLARO [Concomitant]
     Active Substance: IXAZOMIB CITRATE
  3. DEXAMETHASONE [Concomitant]
     Active Substance: DEXAMETHASONE
  4. CLOPIDOGREL [Concomitant]
     Active Substance: CLOPIDOGREL BISULFATE
  5. ACYCLOVIR [Concomitant]
     Active Substance: ACYCLOVIR
  6. POTASSIUM CHLORIDE [Concomitant]
     Active Substance: POTASSIUM CHLORIDE
  7. VITAMIN B12 [Concomitant]
     Active Substance: CYANOCOBALAMIN
  8. LISINOPRIL [Concomitant]
     Active Substance: LISINOPRIL
  9. ZIOPTAN [Concomitant]
     Active Substance: TAFLUPROST
  10. VITAMINS [Concomitant]
     Active Substance: VITAMINS

REACTIONS (3)
  - COVID-19 [Unknown]
  - Cough [Unknown]
  - Immunosuppression [Unknown]

NARRATIVE: CASE EVENT DATE: 20240601
